FAERS Safety Report 8958810 (Version 2)
Quarter: 2014Q1

REPORT INFORMATION
  Report Type: Spontaneous
  Country: US (occurrence: US)
  Receive Date: 20121212
  Receipt Date: 20140314
  Transmission Date: 20141002
  Serious: Yes (Hospitalization)
  Sender: FDA-Public Use
  Company Number: US-BAYER-2012-129191

PATIENT
  Age: 21 Year
  Sex: Female
  Weight: 68.03 kg

DRUGS (3)
  1. YASMIN [Suspect]
     Dosage: UNK
     Dates: start: 200610, end: 200807
  2. OCELLA [Suspect]
     Dosage: UNK
     Dates: start: 20080804, end: 200909
  3. TAGAMET [Concomitant]
     Dosage: UNK
     Route: 048
     Dates: start: 20060117

REACTIONS (2)
  - Cholecystectomy [None]
  - Cholecystitis [None]
